FAERS Safety Report 18374059 (Version 2)
Quarter: 2020Q4

REPORT INFORMATION
  Report Type: Spontaneous
  Country: JP (occurrence: JP)
  Receive Date: 20201013
  Receipt Date: 20201124
  Transmission Date: 20210114
  Serious: Yes (Other)
  Sender: FDA-Public Use
  Company Number: JP-SAKK-2020SA278889AA

PATIENT

DRUGS (4)
  1. MABCAMPATH [Suspect]
     Active Substance: ALEMTUZUMAB
     Dosage: 30 MG PER DOSE, TIW
     Route: 041
     Dates: start: 20201012
  2. MABCAMPATH [Suspect]
     Active Substance: ALEMTUZUMAB
     Indication: T-CELL PROLYMPHOCYTIC LEUKAEMIA
     Dosage: 3 MG, 1X
     Route: 041
     Dates: start: 20201007, end: 20201007
  3. MABCAMPATH [Suspect]
     Active Substance: ALEMTUZUMAB
     Dosage: 10 MG, 1X
     Route: 041
     Dates: start: 20201008, end: 20201008
  4. MABCAMPATH [Suspect]
     Active Substance: ALEMTUZUMAB
     Dosage: 30 MG, 1X
     Route: 041
     Dates: start: 20201009, end: 20201009

REACTIONS (2)
  - Platelet count decreased [Not Recovered/Not Resolved]
  - Cerebral haemorrhage [Unknown]

NARRATIVE: CASE EVENT DATE: 20201008
